FAERS Safety Report 14348561 (Version 1)
Quarter: 2018Q1

REPORT INFORMATION
  Report Type: Spontaneous
  Country: US (occurrence: US)
  Receive Date: 20180103
  Receipt Date: 20180103
  Transmission Date: 20180509
  Serious: No
  Sender: FDA-Public Use
  Company Number: US-SHIRE-US201734347

PATIENT
  Sex: Female

DRUGS (1)
  1. GATTEX [Suspect]
     Active Substance: TEDUGLUTIDE\WATER
     Indication: SHORT-BOWEL SYNDROME
     Dosage: 0.39 ML, (DAILY)
     Route: 065
     Dates: start: 20171206

REACTIONS (3)
  - Accidental overdose [Unknown]
  - Abdominal pain [Unknown]
  - Diarrhoea [Unknown]
